FAERS Safety Report 24667866 (Version 1)
Quarter: 2024Q4

REPORT INFORMATION
  Report Type: Report from Study
  Country: CA (occurrence: CA)
  Receive Date: 20241127
  Receipt Date: 20241127
  Transmission Date: 20250114
  Serious: Yes (Other)
  Sender: CURRAX PHARMACEUTICALS
  Company Number: CA-BAUSCH-BL-2023-013950

PATIENT
  Sex: Female

DRUGS (12)
  1. CONTRAVE [Suspect]
     Active Substance: BUPROPION HYDROCHLORIDE\NALTREXONE HYDROCHLORIDE
     Indication: Weight control
     Dosage: 90/8 MG, 1 TAB Q AM
     Route: 048
     Dates: start: 20230902, end: 20230912
  2. CONTRAVE [Suspect]
     Active Substance: BUPROPION HYDROCHLORIDE\NALTREXONE HYDROCHLORIDE
     Dosage: 90/8 MG, 1 TAB Q AM, 1 TAB Q PM
     Route: 048
     Dates: start: 20230913, end: 202309
  3. CONTRAVE [Suspect]
     Active Substance: BUPROPION HYDROCHLORIDE\NALTREXONE HYDROCHLORIDE
     Dosage: 90/8 MG
     Route: 048
     Dates: start: 202309, end: 202309
  4. CONTRAVE [Suspect]
     Active Substance: BUPROPION HYDROCHLORIDE\NALTREXONE HYDROCHLORIDE
     Dosage: 90/8 MG, 4 TABS/DAY
     Route: 048
     Dates: start: 20230927, end: 20240312
  5. CONTRAVE [Suspect]
     Active Substance: BUPROPION HYDROCHLORIDE\NALTREXONE HYDROCHLORIDE
     Dosage: 90/8 MG, (SECOND ATTEMPT), 1 TAB Q AM, 1 TAB Q PM
     Route: 048
     Dates: start: 20240415, end: 20240418
  6. CONTRAVE [Suspect]
     Active Substance: BUPROPION HYDROCHLORIDE\NALTREXONE HYDROCHLORIDE
     Dosage: 90/8 MG, 1 TAB Q AM, 1 TAB NOON, 1 TAB Q PM (1 DOSAGE FORMS,1 IN 8 HR)
     Route: 048
     Dates: start: 20240419, end: 202405
  7. CONTRAVE [Suspect]
     Active Substance: BUPROPION HYDROCHLORIDE\NALTREXONE HYDROCHLORIDE
     Dosage: 90/8 MG (THIRD ATTEMPT)
     Route: 048
     Dates: start: 202407, end: 20240803
  8. CONTRAVE [Suspect]
     Active Substance: BUPROPION HYDROCHLORIDE\NALTREXONE HYDROCHLORIDE
     Dosage: 90/8 MG, 4 TABS/DAY
     Route: 048
     Dates: start: 20240804, end: 202410
  9. CORTISONE [Suspect]
     Active Substance: CORTISONE
     Indication: Neck pain
     Dosage: UNK
     Route: 065
  10. BISOPROLOL [Concomitant]
     Active Substance: BISOPROLOL
     Indication: Ventricular extrasystoles
     Dosage: 1 IN 1 D
     Route: 048
  11. MEDROXYPROGESTERONE ACETATE [Concomitant]
     Active Substance: MEDROXYPROGESTERONE ACETATE
     Indication: Menopause
     Dosage: 1 IN 1 D
     Route: 048
  12. PREMARIN [Concomitant]
     Active Substance: ESTROGENS, CONJUGATED
     Indication: Menopause
     Dosage: 1 IN 1 D
     Route: 048

REACTIONS (34)
  - Cerebrovascular accident [Not Recovered/Not Resolved]
  - Arnold-Chiari malformation [Not Recovered/Not Resolved]
  - Balance disorder [Unknown]
  - Dizziness [Not Recovered/Not Resolved]
  - Food interaction [Unknown]
  - Seasonal affective disorder [Not Recovered/Not Resolved]
  - Blood cholesterol increased [Not Recovered/Not Resolved]
  - Neck pain [Not Recovered/Not Resolved]
  - Blood pressure decreased [Not Recovered/Not Resolved]
  - Ventricular extrasystoles [Not Recovered/Not Resolved]
  - Aphasia [Not Recovered/Not Resolved]
  - Condition aggravated [Not Recovered/Not Resolved]
  - Derealisation [Unknown]
  - Nasopharyngitis [Unknown]
  - Poor quality sleep [Not Recovered/Not Resolved]
  - Dizziness postural [Not Recovered/Not Resolved]
  - Abdominal discomfort [Not Recovered/Not Resolved]
  - Dyspepsia [Unknown]
  - Cognitive disorder [Not Recovered/Not Resolved]
  - Depression [Unknown]
  - Memory impairment [Not Recovered/Not Resolved]
  - Nausea [Not Recovered/Not Resolved]
  - Constipation [Recovering/Resolving]
  - Abdominal pain upper [Recovered/Resolved]
  - Fatigue [Not Recovered/Not Resolved]
  - Vomiting [Recovered/Resolved]
  - Hyperhidrosis [Not Recovered/Not Resolved]
  - Feeling hot [Not Recovered/Not Resolved]
  - Anxiety [Not Recovered/Not Resolved]
  - Feeling abnormal [Unknown]
  - Headache [Not Recovered/Not Resolved]
  - Product use issue [Unknown]
  - Prescribed underdose [Unknown]
  - Underdose [Unknown]

NARRATIVE: CASE EVENT DATE: 20230101
